FAERS Safety Report 6955511-1 (Version None)
Quarter: 2010Q3

REPORT INFORMATION
  Report Type: 
  Country: None (occurrence: None)
  Receive Date: 20100826
  Receipt Date: 20100826
  Transmission Date: 20110219
  Serious: Yes (Hospitalization)
  Sender: FDA-Public Use
  Company Number: None

PATIENT
  Sex: Female
  Weight: 68.7 kg

DRUGS (8)
  1. SOLIRIS [Suspect]
     Indication: PROPHYLAXIS AGAINST TRANSPLANT REJECTION
     Dosage: 1200 MG ONCE IV ; 900 MG 13 DOSES IV
     Route: 042
     Dates: start: 20100728, end: 20100731
  2. SOLIRIS [Suspect]
     Indication: PROPHYLAXIS AGAINST TRANSPLANT REJECTION
     Dosage: 1200 MG ONCE IV ; 900 MG 13 DOSES IV
     Route: 042
     Dates: start: 20100801, end: 20100802
  3. SOLIRIS [Suspect]
     Indication: PROPHYLAXIS AGAINST TRANSPLANT REJECTION
     Dosage: 1200 MG ONCE IV ; 900 MG 13 DOSES IV
     Route: 042
     Dates: start: 20100804, end: 20100807
  4. SOLIRIS [Suspect]
     Indication: PROPHYLAXIS AGAINST TRANSPLANT REJECTION
     Dosage: 1200 MG ONCE IV ; 900 MG 13 DOSES IV
     Route: 042
     Dates: start: 20100721
  5. SOLIRIS [Suspect]
     Indication: PROPHYLAXIS AGAINST TRANSPLANT REJECTION
     Dosage: 1200 MG ONCE IV ; 900 MG 13 DOSES IV
     Route: 042
     Dates: start: 20100722
  6. SOLIRIS [Suspect]
     Indication: PROPHYLAXIS AGAINST TRANSPLANT REJECTION
     Dosage: 1200 MG ONCE IV ; 900 MG 13 DOSES IV
     Route: 042
     Dates: start: 20100808
  7. SOLIRIS [Suspect]
     Indication: PROPHYLAXIS AGAINST TRANSPLANT REJECTION
     Dosage: 1200 MG ONCE IV ; 900 MG 13 DOSES IV
     Route: 042
     Dates: start: 20100809
  8. SOLIRIS [Suspect]
     Indication: PROPHYLAXIS AGAINST TRANSPLANT REJECTION
     Dosage: 1200 MG ONCE IV ; 900 MG 13 DOSES IV
     Route: 042
     Dates: start: 20100812

REACTIONS (6)
  - ABDOMINAL PAIN LOWER [None]
  - ASCITES [None]
  - DYSPNOEA [None]
  - ELECTROCARDIOGRAM T WAVE PEAKED [None]
  - HYPERKALAEMIA [None]
  - KIDNEY TRANSPLANT REJECTION [None]
